FAERS Safety Report 16126977 (Version 1)
Quarter: 2019Q1

REPORT INFORMATION
  Report Type: Spontaneous
  Country: US (occurrence: US)
  Receive Date: 20190222
  Receipt Date: 20190222
  Transmission Date: 20190418
  Serious: Yes (Disabling)
  Sender: FDA-Public Use
  Company Number: None

PATIENT
  Age: 47 Year
  Sex: Female
  Weight: 65.77 kg

DRUGS (5)
  1. SELENIUM [Concomitant]
     Active Substance: SELENIUM
  2. HYOSCYAMINE. [Suspect]
     Active Substance: HYOSCYAMINE
     Indication: DIARRHOEA
     Dosage: ?          QUANTITY:0.125 MG;OTHER FREQUENCY:EVERY 6HRS AS NEED;?
     Route: 048
     Dates: start: 20180706, end: 20180806
  3. HYOSCYAMINE. [Suspect]
     Active Substance: HYOSCYAMINE
     Indication: MUSCLE SPASMS
     Dosage: ?          QUANTITY:0.125 MG;OTHER FREQUENCY:EVERY 6HRS AS NEED;?
     Route: 048
     Dates: start: 20180706, end: 20180806
  4. ULTRA MEGA VITAMINS [Concomitant]
  5. CALCIUM [Concomitant]
     Active Substance: CALCIUM

REACTIONS (3)
  - Vision blurred [None]
  - Abdominal pain upper [None]
  - Constipation [None]
